FAERS Safety Report 5307143-9 (Version None)
Quarter: 2007Q2

REPORT INFORMATION
  Report Type: 
  Country: None (occurrence: None)
  Receive Date: 20070420
  Receipt Date: 20070420
  Transmission Date: 20071010
  Serious: Yes (Hospitalization)
  Sender: FDA-Public Use
  Company Number: None

PATIENT
  Sex: Female
  Weight: 68.0396 kg

DRUGS (3)
  1. DAYQUIL VICKS [Suspect]
     Indication: COUGH
     Dosage: 2 LIQUID GEL CAPS EVERY 4 HOURS PO
     Route: 048
     Dates: start: 20070418, end: 20070418
  2. DAYQUIL VICKS [Suspect]
     Indication: HEADACHE
     Dosage: 2 LIQUID GEL CAPS EVERY 4 HOURS PO
     Route: 048
     Dates: start: 20070418, end: 20070418
  3. DAYQUIL VICKS [Suspect]
     Indication: NASOPHARYNGITIS
     Dosage: 2 LIQUID GEL CAPS EVERY 4 HOURS PO
     Route: 048
     Dates: start: 20070418, end: 20070418

REACTIONS (5)
  - COMMUNICATION DISORDER [None]
  - CONFUSIONAL STATE [None]
  - DIZZINESS [None]
  - EUPHORIC MOOD [None]
  - SOMNOLENCE [None]
